FAERS Safety Report 6233406-9 (Version None)
Quarter: 2009Q2

REPORT INFORMATION
  Report Type: 
  Country: None (occurrence: None)
  Receive Date: 20090617
  Receipt Date: 20090615
  Transmission Date: 20091009
  Serious: Yes (Other)
  Sender: FDA-Public Use
  Company Number: US-BRISTOL-MYERS SQUIBB COMPANY-14666390

PATIENT
  Age: 73 Year
  Sex: Female

DRUGS (1)
  1. COUMADIN [Suspect]

REACTIONS (3)
  - BLINDNESS [None]
  - PROTHROMBIN LEVEL DECREASED [None]
  - RETINAL HAEMORRHAGE [None]
